FAERS Safety Report 22071032 (Version 1)
Quarter: 2023Q1

REPORT INFORMATION
  Report Type: Spontaneous
  Country: CN (occurrence: CN)
  Receive Date: 20230307
  Receipt Date: 20230307
  Transmission Date: 20230418
  Serious: Yes (Other)
  Sender: FDA-Public Use
  Company Number: CN-002147023-NVSC2023CN048692

PATIENT
  Sex: Male
  Weight: 60 kg

DRUGS (2)
  1. TRILEPTAL [Suspect]
     Active Substance: OXCARBAZEPINE
     Indication: Neuralgia
     Dosage: 0.3 G, BID
     Route: 048
     Dates: start: 20230201, end: 20230219
  2. TRILEPTAL [Suspect]
     Active Substance: OXCARBAZEPINE
     Indication: Spinal cord injury

REACTIONS (1)
  - Drug-induced liver injury [Recovering/Resolving]
